FAERS Safety Report 18205413 (Version 3)
Quarter: 2022Q3

REPORT INFORMATION
  Report Type: Spontaneous
  Country: CA (occurrence: CA)
  Receive Date: 20200828
  Receipt Date: 20220922
  Transmission Date: 20221026
  Serious: Yes (Other)
  Sender: FDA-Public Use
  Company Number: CA-TEVA-2020-CA-1818087

PATIENT
  Age: 32 Year
  Sex: Female

DRUGS (38)
  1. QUETIAPINE FUMARATE [Suspect]
     Active Substance: QUETIAPINE FUMARATE
     Indication: Schizophrenia
     Route: 065
  2. QUETIAPINE FUMARATE [Suspect]
     Active Substance: QUETIAPINE FUMARATE
     Route: 065
  3. QUETIAPINE FUMARATE [Suspect]
     Active Substance: QUETIAPINE FUMARATE
     Route: 048
  4. QUETIAPINE FUMARATE [Suspect]
     Active Substance: QUETIAPINE FUMARATE
     Route: 048
  5. QUETIAPINE FUMARATE [Suspect]
     Active Substance: QUETIAPINE FUMARATE
     Route: 046
  6. ARIPIPRAZOLE [Suspect]
     Active Substance: ARIPIPRAZOLE
     Indication: Schizophrenia
     Route: 065
  7. ARIPIPRAZOLE [Suspect]
     Active Substance: ARIPIPRAZOLE
     Route: 065
  8. ARIPIPRAZOLE [Suspect]
     Active Substance: ARIPIPRAZOLE
     Route: 065
  9. OLANZAPINE [Suspect]
     Active Substance: OLANZAPINE
     Indication: Schizophrenia
     Route: 065
  10. RISPERIDONE [Suspect]
     Active Substance: RISPERIDONE
     Indication: Schizophrenia
     Route: 065
  11. CLOZAPINE [Suspect]
     Active Substance: CLOZAPINE
     Indication: Schizophrenia
     Route: 065
  12. CLOZAPINE [Suspect]
     Active Substance: CLOZAPINE
     Indication: Product used for unknown indication
  13. FLUPENTIXOL DIHYDROCHLORIDE [Suspect]
     Active Substance: FLUPENTIXOL DIHYDROCHLORIDE
     Indication: Schizophrenia
     Route: 065
  14. FLUPENTIXOL DIHYDROCHLORIDE [Suspect]
     Active Substance: FLUPENTIXOL DIHYDROCHLORIDE
     Route: 065
  15. LATUDA [Suspect]
     Active Substance: LURASIDONE HYDROCHLORIDE
     Indication: Product used for unknown indication
     Route: 065
  16. LATUDA [Suspect]
     Active Substance: LURASIDONE HYDROCHLORIDE
     Indication: Schizophrenia
     Route: 065
  17. LATUDA [Suspect]
     Active Substance: LURASIDONE HYDROCHLORIDE
     Route: 065
  18. LURASIDONE HYDROCHLORIDE [Suspect]
     Active Substance: LURASIDONE HYDROCHLORIDE
     Indication: Schizophrenia
     Route: 065
  19. LURASIDONE HYDROCHLORIDE [Suspect]
     Active Substance: LURASIDONE HYDROCHLORIDE
     Route: 065
  20. PALIPERIDONE PALMITATE [Suspect]
     Active Substance: PALIPERIDONE PALMITATE
     Indication: Schizophrenia
     Route: 065
  21. PALIPERIDONE PALMITATE [Suspect]
     Active Substance: PALIPERIDONE PALMITATE
     Indication: Product used for unknown indication
     Route: 065
  22. RISPERDAL CONSTA [Suspect]
     Active Substance: RISPERIDONE
     Indication: Schizophrenia
     Route: 065
  23. RISPERDAL CONSTA [Suspect]
     Active Substance: RISPERIDONE
     Route: 030
  24. RISPERDAL CONSTA [Suspect]
     Active Substance: RISPERIDONE
     Route: 030
  25. SAPHRIS [Suspect]
     Active Substance: ASENAPINE MALEATE
     Indication: Schizophrenia
     Route: 065
  26. ZIPRASIDONE MESYLATE [Suspect]
     Active Substance: ZIPRASIDONE MESYLATE
     Indication: Schizophrenia
     Route: 065
  27. ZIPRASIDONE MESYLATE [Suspect]
     Active Substance: ZIPRASIDONE MESYLATE
     Route: 065
  28. ZUCLOPENTHIXOL ACETATE [Suspect]
     Active Substance: ZUCLOPENTHIXOL ACETATE
     Indication: Schizophrenia
     Route: 065
  29. ZUCLOPENTHIXOL DECANOATE [Suspect]
     Active Substance: ZUCLOPENTHIXOL DECANOATE
     Indication: Schizophrenia
     Route: 065
  30. ZYPREXA [Suspect]
     Active Substance: OLANZAPINE
     Indication: Schizophrenia
     Route: 065
  31. INVEGA [Suspect]
     Active Substance: PALIPERIDONE
     Indication: Schizophrenia
     Route: 065
  32. INVEGA [Suspect]
     Active Substance: PALIPERIDONE
     Indication: Product used for unknown indication
     Route: 065
  33. ABILIFY MAINTENA [Suspect]
     Active Substance: ARIPIPRAZOLE
     Indication: Schizophrenia
     Route: 065
  34. ABILIFY MAINTENA [Suspect]
     Active Substance: ARIPIPRAZOLE
     Route: 065
  35. ABILIFY [Suspect]
     Active Substance: ARIPIPRAZOLE
     Indication: Schizophrenia
     Route: 065
  36. RISPERDAL [Suspect]
     Active Substance: RISPERIDONE
     Indication: Schizophrenia
     Route: 065
  37. RISPERDAL [Concomitant]
     Active Substance: RISPERIDONE
     Indication: Schizophrenia
     Route: 065
  38. RISPERDAL [Concomitant]
     Active Substance: RISPERIDONE
     Indication: Product used for unknown indication

REACTIONS (16)
  - Anosognosia [Unknown]
  - Blood glucose increased [Unknown]
  - Blood prolactin abnormal [Unknown]
  - Disturbance in social behaviour [Unknown]
  - Dyskinesia [Unknown]
  - Dystonia [Unknown]
  - Metabolic disorder [Unknown]
  - Personality change [Unknown]
  - Schizophrenia [Unknown]
  - Sedation [Unknown]
  - Sexual dysfunction [Unknown]
  - Suicide attempt [Unknown]
  - Drug ineffective [Unknown]
  - Adverse drug reaction [Unknown]
  - Condition aggravated [Unknown]
  - Personality disorder [Unknown]
